FAERS Safety Report 7735205-5 (Version None)
Quarter: 2011Q3

REPORT INFORMATION
  Report Type: 
  Country: None (occurrence: None)
  Receive Date: 20110907
  Receipt Date: 20110726
  Transmission Date: 20111222
  Serious: Yes (Hospitalization)
  Sender: FDA-Public Use
  Company Number: PHHO2011JP13822

PATIENT
  Age: 70 Year
  Sex: Female
  Weight: 54.5 kg

DRUGS (9)
  1. SAWADOL L [Concomitant]
  2. NIFELAT L [Concomitant]
  3. SORAFENIB [Suspect]
  4. GLYCYOL [Concomitant]
  5. GLYSENNID [Suspect]
     Dosage: UNK
     Route: 048
     Dates: start: 20040101
  6. ASPARA-CA [Concomitant]
  7. URSO 250 [Concomitant]
  8. D ALFA [Concomitant]
  9. RETICOLAN [Concomitant]

REACTIONS (5)
  - BLOOD AMYLASE INCREASED [None]
  - DIARRHOEA [None]
  - PANCREATIC ENZYMES INCREASED [None]
  - LIPASE INCREASED [None]
  - ABDOMINAL PAIN [None]
